FAERS Safety Report 13694489 (Version 1)
Quarter: 2017Q2

REPORT INFORMATION
  Report Type: Report from Study
  Country: None (occurrence: IT)
  Receive Date: 20170627
  Receipt Date: 20170627
  Transmission Date: 20170830
  Serious: Yes (Hospitalization)
  Sender: FDA-Public Use
  Company Number: IT-ABBVIE-17P-083-2020041-00

PATIENT
  Age: 24 Year
  Sex: Male

DRUGS (1)
  1. KLACID [Suspect]
     Active Substance: CLARITHROMYCIN
     Indication: EAR PAIN
     Dosage: 2 DF, QD
     Route: 048
     Dates: start: 20170130

REACTIONS (5)
  - Formication [Recovering/Resolving]
  - Chest discomfort [Recovering/Resolving]
  - Tremor [Recovering/Resolving]
  - Presyncope [Recovering/Resolving]
  - Agitation [Recovering/Resolving]

NARRATIVE: CASE EVENT DATE: 20170131
